FAERS Safety Report 23484717 (Version 1)
Quarter: 2024Q1

REPORT INFORMATION
  Report Type: Other
  Country: AU (occurrence: None)
  Receive Date: 20240206
  Receipt Date: 20240206
  Transmission Date: 20240409
  Serious: Yes (Other)
  Sender: FDA-Public Use
  Company Number: AU-ROCHE-2747770

PATIENT
  Age: 32 Year
  Sex: Female

DRUGS (1)
  1. OCREVUS [Suspect]
     Active Substance: OCRELIZUMAB
     Indication: Relapsing-remitting multiple sclerosis
     Route: 041
     Dates: start: 20171201

REACTIONS (4)
  - Multiple sclerosis [Unknown]
  - General physical health deterioration [Unknown]
  - COVID-19 [Recovered/Resolved with Sequelae]
  - COVID-19 pneumonia [Unknown]

NARRATIVE: CASE EVENT DATE: 20230301
